FAERS Safety Report 16275082 (Version 1)
Quarter: 2019Q2

REPORT INFORMATION
  Report Type: Spontaneous
  Country: US (occurrence: US)
  Receive Date: 20190505
  Receipt Date: 20190505
  Transmission Date: 20190711
  Serious: Yes (Life-Threatening, Other)
  Sender: FDA-Public Use
  Company Number: None

PATIENT
  Age: 82 Year
  Sex: Female
  Weight: 63 kg

DRUGS (1)
  1. ZOLPIDEM [Suspect]
     Active Substance: ZOLPIDEM\ZOLPIDEM TARTRATE
     Indication: INSOMNIA
     Route: 048

REACTIONS (10)
  - Aphasia [None]
  - Fall [None]
  - Self esteem decreased [None]
  - Dehydration [None]
  - Anxiety [None]
  - Depression [None]
  - Somnambulism [None]
  - Eye contusion [None]
  - Contusion [None]
  - Skin lesion [None]

NARRATIVE: CASE EVENT DATE: 20190420
